FAERS Safety Report 5743076-1 (Version None)
Quarter: 2008Q2

REPORT INFORMATION
  Report Type: 
  Country: None (occurrence: None)
  Receive Date: 20080516
  Receipt Date: 20070918
  Transmission Date: 20081010
  Serious: Yes (Hospitalization)
  Sender: FDA-Public Use
  Company Number: 2007S1000374

PATIENT
  Age: 65 Year
  Sex: Female
  Weight: 127 kg

DRUGS (13)
  1. CUBICIN [Suspect]
     Indication: OSTEOMYELITIS
     Dosage: 5.9 MG/KG;Q24H;IV
     Route: 042
     Dates: start: 20070904, end: 20070914
  2. TOPROL-XL [Concomitant]
  3. CLONIDINE [Concomitant]
  4. TRIAMTERENE [Concomitant]
  5. HYDROCHLOROTHIAZIDE [Concomitant]
  6. AMLODIPINE [Concomitant]
  7. BENAZEPRIL HYDROCHLORIDE [Concomitant]
  8. GLUCOPHAGE [Concomitant]
  9. LIPITOR [Concomitant]
  10. GEMFIBROZIL [Concomitant]
  11. FENOFIBRATE [Concomitant]
  12. NEXIUM [Concomitant]
  13. COUMADIN [Concomitant]

REACTIONS (4)
  - ALANINE AMINOTRANSFERASE INCREASED [None]
  - ASPARTATE AMINOTRANSFERASE INCREASED [None]
  - MYALGIA [None]
  - RHABDOMYOLYSIS [None]
